FAERS Safety Report 10133000 (Version 1)
Quarter: 2014Q2

REPORT INFORMATION
  Report Type: Spontaneous
  Country: US (occurrence: US)
  Receive Date: 20140428
  Receipt Date: 20140428
  Transmission Date: 20141212
  Serious: Yes (Death)
  Sender: FDA-Public Use
  Company Number: US-BRACCO-009272

PATIENT
  Age: 72 Year
  Sex: Female

DRUGS (1)
  1. PROHANCE [Suspect]
     Indication: NUCLEAR MAGNETIC RESONANCE IMAGING BRAIN
     Route: 042
     Dates: start: 20130313, end: 20130313

REACTIONS (4)
  - Pulse absent [Fatal]
  - Loss of consciousness [Unknown]
  - Pruritus [Unknown]
  - Malaise [Unknown]
